FAERS Safety Report 5383488-1 (Version None)
Quarter: 2007Q3

REPORT INFORMATION
  Report Type: 
  Country: None (occurrence: None)
  Receive Date: 20070706
  Receipt Date: 20070622
  Transmission Date: 20080115
  Serious: Yes (Hospitalization)
  Sender: FDA-Public Use
  Company Number: 2007EU001067

PATIENT
  Age: 51 Year
  Sex: Male
  Weight: 65 kg

DRUGS (2)
  1. TACROLIMUS [Suspect]
     Indication: RENAL TRANSPLANT
     Dosage: SEE IMAGE
     Route: 048
     Dates: start: 20070107
  2. EVEROLIMUS(EVEROLIMUS) [Suspect]
     Indication: RENAL TRANSPLANT
     Dosage: 1.5 MG, /D, ORAL
     Route: 048
     Dates: start: 20070107

REACTIONS (6)
  - BACTERIA URINE IDENTIFIED [None]
  - BLOOD CREATININE INCREASED [None]
  - DISEASE RECURRENCE [None]
  - ESCHERICHIA INFECTION [None]
  - PYELONEPHRITIS [None]
  - URINARY TRACT INFECTION [None]
